FAERS Safety Report 4747748-7 (Version None)
Quarter: 2005Q3

REPORT INFORMATION
  Report Type: 
  Country: None (occurrence: None)
  Receive Date: 20050816
  Receipt Date: 20050802
  Transmission Date: 20060218
  Serious: Yes (Other)
  Sender: FDA-Public Use
  Company Number: 2005BI013465

PATIENT
  Age: 60 Year
  Sex: Female
  Weight: 53.5244 kg

DRUGS (4)
  1. AVONEX [Suspect]
     Indication: MULTIPLE SCLEROSIS
     Dosage: 7.5 UG;QW; IM
     Route: 030
     Dates: start: 20050418, end: 20050418
  2. AVONEX [Suspect]
     Indication: MULTIPLE SCLEROSIS
     Dosage: 7.5 UG;QW; IM
     Route: 030
     Dates: start: 20050425, end: 20050425
  3. AVONEX [Suspect]
     Indication: MULTIPLE SCLEROSIS
     Dosage: 7.5 UG;QW; IM
     Route: 030
     Dates: start: 20050502, end: 20050530
  4. AVONEX [Suspect]
     Indication: MULTIPLE SCLEROSIS
     Dosage: 30 UG; QW; IM
     Route: 030
     Dates: start: 20050606, end: 20050627

REACTIONS (28)
  - ASTHMA [None]
  - CONTUSION [None]
  - DEPRESSION [None]
  - DIZZINESS [None]
  - DRUG HYPERSENSITIVITY [None]
  - DYSPNOEA [None]
  - EYE SWELLING [None]
  - FALL [None]
  - FATIGUE [None]
  - FEELING COLD [None]
  - FEELING HOT [None]
  - GINGIVAL BLEEDING [None]
  - GINGIVAL BLISTER [None]
  - GINGIVAL PAIN [None]
  - HEADACHE [None]
  - MULTIPLE SCLEROSIS RELAPSE [None]
  - MYALGIA [None]
  - NAUSEA [None]
  - OCULAR HYPERAEMIA [None]
  - ORAL MUCOSAL BLISTERING [None]
  - ORAL PAIN [None]
  - PYREXIA [None]
  - RASH PAPULAR [None]
  - SWELLING FACE [None]
  - SWOLLEN TONGUE [None]
  - VERTIGO [None]
  - VISION BLURRED [None]
  - VOMITING [None]
